FAERS Safety Report 15497756 (Version 1)
Quarter: 2018Q4

REPORT INFORMATION
  Report Type: Spontaneous
  Country: CA (occurrence: CA)
  Receive Date: 20181015
  Receipt Date: 20181015
  Transmission Date: 20190205
  Serious: Yes (Disabling)
  Sender: FDA-Public Use
  Company Number: CA-ORION CORPORATION ORION PHARMA-TREX2018-2135

PATIENT
  Age: 39 Year
  Sex: Female

DRUGS (4)
  1. VITAMINS [Concomitant]
     Active Substance: VITAMINS
     Route: 065
  2. METHOTREXATE (TRADE NAME UNKNOWN) [Suspect]
     Active Substance: METHOTREXATE
     Indication: PRODUCT USED FOR UNKNOWN INDICATION
     Route: 048
  3. ALYSENA [Concomitant]
     Route: 065
  4. XELJANZ [Concomitant]
     Active Substance: TOFACITINIB CITRATE
     Indication: RHEUMATOID ARTHRITIS
     Route: 048
     Dates: start: 20180616

REACTIONS (5)
  - Nausea [Unknown]
  - Rheumatoid arthritis [Unknown]
  - Bedridden [Unknown]
  - Product dose omission [Unknown]
  - Feeding disorder [Unknown]
